FAERS Safety Report 13708963 (Version 1)
Quarter: 2017Q3

REPORT INFORMATION
  Report Type: Spontaneous
  Country: AT (occurrence: AT)
  Receive Date: 20170701
  Receipt Date: 20170701
  Transmission Date: 20171127
  Serious: Yes (Other)
  Sender: FDA-Public Use
  Company Number: AT-AMGEN-AUTSP2017097352

PATIENT
  Sex: Male

DRUGS (2)
  1. XGEVA [Suspect]
     Active Substance: DENOSUMAB
     Indication: PROSTATE CANCER
     Dosage: UNK
     Route: 065
  2. JAKAVI [Concomitant]
     Active Substance: RUXOLITINIB

REACTIONS (6)
  - Basal cell carcinoma [Unknown]
  - Infection susceptibility increased [Unknown]
  - Skin wound [Unknown]
  - Skin lesion [Unknown]
  - Impaired healing [Unknown]
  - Skin disorder [Unknown]
